FAERS Safety Report 13282398 (Version 1)
Quarter: 2017Q1

REPORT INFORMATION
  Report Type: Spontaneous
  Country: US (occurrence: US)
  Receive Date: 20170301
  Receipt Date: 20170301
  Transmission Date: 20170428
  Serious: Yes (Hospitalization, Other)
  Sender: FDA-Public Use
  Company Number: US-SHIRE-US201703667

PATIENT
  Age: 33 Year
  Sex: Male

DRUGS (2)
  1. 433 (CARBAMAZEPINE) [Suspect]
     Active Substance: CARBAMAZEPINE
     Indication: SCHIZOAFFECTIVE DISORDER
     Dosage: 200 MG, 2X/DAY:BID
     Route: 048
  2. 433 (CARBAMAZEPINE) [Suspect]
     Active Substance: CARBAMAZEPINE
     Dosage: 300 MG, 2X/DAY:BID
     Route: 048

REACTIONS (11)
  - Drug dose omission [Unknown]
  - Asthenia [Unknown]
  - Hyperacusis [Unknown]
  - Depressed mood [Unknown]
  - Suicidal ideation [Unknown]
  - Headache [Unknown]
  - Insomnia [Unknown]
  - Product use issue [Unknown]
  - Photophobia [Unknown]
  - Seizure [Unknown]
  - Depression [Unknown]
